FAERS Safety Report 4491089-2 (Version None)
Quarter: 2004Q4

REPORT INFORMATION
  Report Type: 
  Country: None (occurrence: None)
  Receive Date: 20041102
  Receipt Date: 20041025
  Transmission Date: 20050328
  Serious: Yes (Hospitalization, Disabling)
  Sender: FDA-Public Use
  Company Number: US-MERCK-0410USA03689

PATIENT
  Sex: Female

DRUGS (8)
  1. VIOXX [Suspect]
     Indication: ARTHRITIS
     Route: 048
     Dates: start: 19990101, end: 20040901
  2. AMINOPHYLLINE [Concomitant]
     Route: 065
  3. ASPIRIN [Concomitant]
     Route: 065
  4. K-DUR 10 [Concomitant]
     Route: 065
  5. LASIX [Concomitant]
     Route: 065
  6. PREVACID [Concomitant]
     Route: 065
  7. VERAPAMIL [Concomitant]
     Route: 065
  8. PRAVACHOL [Concomitant]
     Route: 065

REACTIONS (6)
  - ACTIVITIES OF DAILY LIVING IMPAIRED [None]
  - ANGINA PECTORIS [None]
  - CARDIAC DISORDER [None]
  - CARDIAC FLUTTER [None]
  - GENERAL SYMPTOM [None]
  - RESPIRATORY TRACT CONGESTION [None]
